FAERS Safety Report 6645890-7 (Version None)
Quarter: 2010Q1

REPORT INFORMATION
  Report Type: 
  Country: None (occurrence: None)
  Receive Date: 20100323
  Receipt Date: 20100311
  Transmission Date: 20100710
  Serious: Yes (Other)
  Sender: FDA-Public Use
  Company Number: PHHY2010CH14828

PATIENT
  Age: 79 Year
  Sex: Female

DRUGS (10)
  1. ZOMETA [Suspect]
     Indication: METASTASES TO BONE
     Dosage: 0.8 MG EVERY 6 WEEKS
     Route: 042
  2. BISOPROLOL [Concomitant]
     Dosage: 5 MG/DAY
  3. ESOMEPRAZOLE [Concomitant]
     Dosage: 20 MG/DAY
  4. TORASEMIDE [Concomitant]
     Dosage: 15 MG/DAY
  5. GLICLAZIDE [Concomitant]
  6. PRAVASTATIN [Concomitant]
  7. ACETAMINOPHEN [Concomitant]
     Dosage: 4 G/DAY
  8. METAMIZOL [Concomitant]
     Dosage: UNK
  9. TRAMADOL HCL [Concomitant]
     Dosage: UNK
  10. LORAZEPAM [Concomitant]
     Dosage: UNK

REACTIONS (4)
  - BONE DISORDER [None]
  - BONE LESION [None]
  - HYPOAESTHESIA ORAL [None]
  - OSTEONECROSIS [None]
